FAERS Safety Report 15344567 (Version 3)
Quarter: 2020Q1

REPORT INFORMATION
  Report Type: Other
  Country: US (occurrence: US)
  Receive Date: 20180903
  Receipt Date: 20200304
  Transmission Date: 20200409
  Serious: Yes (Hospitalization, Disabling, Congenital Anomaly, Other)
  Sender: FDA-Public Use
  Company Number: US-APOTEX-2018AP019219

PATIENT
  Sex: Male

DRUGS (5)
  1. PAROXETINE. [Suspect]
     Active Substance: PAROXETINE
     Dosage: 30 MG, QD
     Route: 048
  2. PAROXETINE. [Suspect]
     Active Substance: PAROXETINE
     Indication: PRODUCT USED FOR UNKNOWN INDICATION
     Dosage: 20 MG, QD
     Route: 048
     Dates: start: 20101130, end: 20120316
  3. PAXIL [Suspect]
     Active Substance: PAROXETINE HYDROCHLORIDE
     Indication: PRODUCT USED FOR UNKNOWN INDICATION
     Dosage: 20 MG, QD (DAILY)
     Route: 048
     Dates: start: 20101030, end: 20120316
  4. PAXIL [Suspect]
     Active Substance: PAROXETINE HYDROCHLORIDE
     Dosage: 30 MG, QD (DAILY)
     Route: 048
     Dates: start: 20120423, end: 20130826
  5. PAROXETINE. [Suspect]
     Active Substance: PAROXETINE
     Dosage: 1 DF, Q.AM (1 TABLET EVERY MORNING)
     Route: 048
     Dates: start: 20130301, end: 20130826

REACTIONS (45)
  - Frustration tolerance decreased [Unknown]
  - Swelling [Unknown]
  - Oropharyngeal discomfort [Unknown]
  - Nasal septum deviation [Unknown]
  - Pharyngitis [Unknown]
  - Tonsillectomy [Unknown]
  - Fall [Unknown]
  - Exostosis [Unknown]
  - Spinal column injury [Unknown]
  - Choking [Unknown]
  - Dystonia [Unknown]
  - Neurodegenerative disorder [Unknown]
  - Testicular pain [Unknown]
  - Feeding disorder [Unknown]
  - Retching [Unknown]
  - Temporomandibular joint syndrome [Unknown]
  - Muscle spasms [Unknown]
  - Salivary gland enlargement [Unknown]
  - Condition aggravated [Unknown]
  - Depressed mood [Unknown]
  - Emotional distress [Unknown]
  - Spermatocele [Unknown]
  - Neck pain [Unknown]
  - Protrusion tongue [Unknown]
  - Asthenia [Unknown]
  - Headache [Unknown]
  - Joint stiffness [Unknown]
  - Nasal septal operation [Unknown]
  - Tardive dyskinesia [Unknown]
  - Anxiety [Unknown]
  - Chronic tonsillitis [Unknown]
  - Dyskinesia [Unknown]
  - Tongue disorder [Unknown]
  - Neck injury [Unknown]
  - Swollen tongue [Unknown]
  - Sleep disorder [Unknown]
  - Pain [Unknown]
  - Regurgitation [Unknown]
  - Nasal discomfort [Unknown]
  - Oromandibular dystonia [Unknown]
  - Congenital tongue anomaly [Unknown]
  - Back pain [Unknown]
  - Respiration abnormal [Unknown]
  - Aphasia [Unknown]
  - Stress [Unknown]

NARRATIVE: CASE EVENT DATE: 20100215
